FAERS Safety Report 22070386 (Version 1)
Quarter: 2023Q1

REPORT INFORMATION
  Report Type: Spontaneous
  Country: LT (occurrence: LT)
  Receive Date: 20230307
  Receipt Date: 20230307
  Transmission Date: 20230418
  Serious: Yes (Hospitalization, Other)
  Sender: FDA-Public Use
  Company Number: LT-Orion Corporation ORION PHARMA-OLAA2021-0005

PATIENT
  Age: 21 Year
  Sex: Male

DRUGS (34)
  1. LORATADINE [Suspect]
     Active Substance: LORATADINE
     Dosage: 10 MILLIGRAM, 31ST DAY
     Route: 048
  2. LORATADINE [Suspect]
     Active Substance: LORATADINE
     Dosage: 20 MILLIGRAM, 32ND DAY TO 39TH DAY
  3. CIPROFLOXACIN [Suspect]
     Active Substance: CIPROFLOXACIN
     Dosage: 800 MILLIGRAM, 35TH TO 39TH DAY
  4. CIPROFLOXACIN [Suspect]
     Active Substance: CIPROFLOXACIN
     Dosage: 400 MILLIGRAM, 31ST DAY
  5. ANTIHEMOPHILIC FACTOR HUMAN [Suspect]
     Active Substance: ANTIHEMOPHILIC FACTOR HUMAN
     Indication: Haemophilia
     Dosage: 1000 IU 28TH DAY
  6. ANTIHEMOPHILIC FACTOR HUMAN [Suspect]
     Active Substance: ANTIHEMOPHILIC FACTOR HUMAN
     Indication: Prophylaxis
  7. QUETIAPINE [Suspect]
     Active Substance: QUETIAPINE
     Indication: Psychotic symptom
     Dosage: 300 MILLIGRAM, QD 43RD DAY
  8. QUETIAPINE [Suspect]
     Active Substance: QUETIAPINE
     Indication: Psychotic symptom
     Dosage: 300 MILLIGRAM, QD 42ND DAY
  9. DIAZEPAM [Suspect]
     Active Substance: DIAZEPAM
     Indication: Aggression
     Dosage: 15 MILLIGRAM, QD, 36TH DAY TO 42ND DAY
  10. DIAZEPAM [Suspect]
     Active Substance: DIAZEPAM
     Indication: Aggression
     Dosage: 15 MILLIGRAM, QD, 1ST DAY TO 32ND DAY
  11. CEFUROXIME [Suspect]
     Active Substance: CEFUROXIME
     Indication: Sinusitis
     Dosage: 4.5 MILLIGRAM, QD, 22ND DAY TO 39TH DAY
  12. CEFUROXIME [Suspect]
     Active Substance: CEFUROXIME
     Indication: Inflammatory marker increased
  13. HALOPERIDOL [Suspect]
     Active Substance: HALOPERIDOL
     Indication: Psychomotor hyperactivity
     Dosage: 1ST TO 23TH DAY
  14. HALOPERIDOL [Suspect]
     Active Substance: HALOPERIDOL
     Indication: Psychomotor hyperactivity
     Dosage: 36TH TO 42ND DAY
  15. CARBAMAZEPINE [Suspect]
     Active Substance: CARBAMAZEPINE
     Indication: Psychotic symptom
     Dosage: 300 MG, QD
  16. CARBAMAZEPINE [Suspect]
     Active Substance: CARBAMAZEPINE
     Indication: Persecutory delusion
     Dosage: 600 MILLIGRAM, QD, 14TH DAY
  17. CARBAMAZEPINE [Suspect]
     Active Substance: CARBAMAZEPINE
     Indication: Psychotic symptom
     Dosage: 300 MILLIGRAM, QD, 11TH DAY
  18. CARBAMAZEPINE [Suspect]
     Active Substance: CARBAMAZEPINE
     Indication: Psychotic symptom
     Dosage: 900 MILLIGRAM, QD, 16TH DAY
  19. CARBAMAZEPINE [Suspect]
     Active Substance: CARBAMAZEPINE
     Indication: Psychotic symptom
     Dosage: 900 MG, QD
  20. CARBAMAZEPINE [Suspect]
     Active Substance: CARBAMAZEPINE
     Indication: Psychotic symptom
     Dosage: 600 MG, QD
  21. DEXAMETHASONE [Suspect]
     Active Substance: DEXAMETHASONE
     Indication: Dermatitis allergic
     Dosage: 12 MILLIGRAM, 32ND TO 39TH DAY
  22. DEXAMETHASONE [Suspect]
     Active Substance: DEXAMETHASONE
     Indication: Rash
  23. TRIHEXYPHENIDYL [Suspect]
     Active Substance: TRIHEXYPHENIDYL
     Indication: Aggression
     Dosage: 6 MILLIGRAM, QD, 39TH DAY
  24. TRIHEXYPHENIDYL [Suspect]
     Active Substance: TRIHEXYPHENIDYL
     Indication: Extrapyramidal disorder
     Dosage: 8 MILLIGRAM, QD, 42ND DAY
  25. TRIHEXYPHENIDYL [Suspect]
     Active Substance: TRIHEXYPHENIDYL
     Indication: Aggression
     Dosage: 4 MILLIGRAM, QD, 1ST DAY TO 32ND DAY
  26. TRIHEXYPHENIDYL [Suspect]
     Active Substance: TRIHEXYPHENIDYL
     Indication: Aggression
     Dosage: 4 MILLIGRAM, QD, 35TH DAY
  27. OLANZAPINE [Suspect]
     Active Substance: OLANZAPINE
     Indication: Psychotic symptom
     Dosage: 15 MG, QD
  28. OLANZAPINE [Suspect]
     Active Substance: OLANZAPINE
     Indication: Persecutory delusion
     Dosage: 20 MG, QD
  29. OLANZAPINE [Suspect]
     Active Substance: OLANZAPINE
     Indication: Psychotic symptom
     Dosage: 20 MILLIGRAM, QD, 8TH HOSPITALISATION DAY
  30. OLANZAPINE [Suspect]
     Active Substance: OLANZAPINE
     Indication: Psychotic symptom
     Dosage: 15 MILLIGRAM, QD, 35TH DAY
  31. AMOXICILLIN [Suspect]
     Active Substance: AMOXICILLIN
     Indication: Oral mucosal eruption
     Dosage: 1500 MILLIGRAM, QD, 14TH TO 20TH DAY
  32. AMOXICILLIN [Suspect]
     Active Substance: AMOXICILLIN
     Indication: Antibiotic therapy
  33. CLEMASTINE [Suspect]
     Active Substance: CLEMASTINE
     Indication: Viral infection
     Dosage: 20TH TO 39TH DAY
  34. IBUPROFEN [Suspect]
     Active Substance: IBUPROFEN
     Indication: Pyrexia
     Dosage: 400 MILLIGRAM, QD, 31ST DAY

REACTIONS (9)
  - Hepatic enzyme increased [Not Recovered/Not Resolved]
  - Acute hepatic failure [Unknown]
  - Extrapyramidal disorder [Unknown]
  - Pyrexia [Unknown]
  - Splenomegaly [Unknown]
  - Acute hepatic failure [Unknown]
  - Extrapyramidal disorder [Recovered/Resolved]
  - Lymphadenopathy [Unknown]
  - Drug reaction with eosinophilia and systemic symptoms [Recovered/Resolved]
